FAERS Safety Report 12531040 (Version 1)
Quarter: 2016Q3

REPORT INFORMATION
  Report Type: Spontaneous
  Country: US (occurrence: None)
  Receive Date: 20160705
  Receipt Date: 20160705
  Transmission Date: 20161109
  Serious: Yes (Hospitalization)
  Sender: FDA-Public Use
  Company Number: None

PATIENT
  Age: 15 Year
  Sex: Female
  Weight: 53.7 kg

DRUGS (5)
  1. VINCRISTINE SULFATE. [Suspect]
     Active Substance: VINCRISTINE SULFATE
     Dates: end: 20160615
  2. DEXAMETHASONE. [Suspect]
     Active Substance: DEXAMETHASONE
     Dates: end: 20160615
  3. MITOXANTRONE HYDROCHLORIDE. [Suspect]
     Active Substance: MITOXANTRONE HYDROCHLORIDE
     Dates: end: 20160526
  4. METHOTREXATE. [Suspect]
     Active Substance: METHOTREXATE
     Dates: end: 20160608
  5. ONCASPAR [Suspect]
     Active Substance: PEGASPARGASE
     Dates: end: 20160610

REACTIONS (7)
  - Pyrexia [None]
  - Back pain [None]
  - Headache [None]
  - Neutropenia [None]
  - Meningitis [None]
  - Extradural abscess [None]
  - Muscle abscess [None]

NARRATIVE: CASE EVENT DATE: 20160622
